FAERS Safety Report 4593808-3 (Version None)
Quarter: 2005Q1

REPORT INFORMATION
  Report Type: 
  Country: None (occurrence: None)
  Receive Date: 20050301
  Receipt Date: 20040831
  Transmission Date: 20050727
  Serious: Yes (Hospitalization, Other)
  Sender: FDA-Public Use
  Company Number: PHBS2004BE11523

PATIENT
  Age: 73 Year
  Sex: Male
  Weight: 70 kg

DRUGS (8)
  1. VINCRISTINE + ADRIAMYCIN + DEXAMETHASONE [Concomitant]
     Route: 065
     Dates: start: 20020801, end: 20021201
  2. VINCRISTINE + ADRIAMYCIN + DEXAMETHASONE [Concomitant]
     Route: 065
     Dates: start: 20040220, end: 20040601
  3. DEXAMETHASONE [Concomitant]
     Dates: start: 20030301
  4. THALIDOMIDE [Suspect]
     Dosage: 200 MG/D
     Route: 065
     Dates: start: 20030410
  5. THALIDOMIDE [Suspect]
     Dosage: 300 MG/D
     Route: 065
  6. THALIDOMIDE [Suspect]
     Dosage: 200 MG/D
     Route: 065
  7. THALIDOMIDE [Suspect]
     Dosage: 100 MG/D
     Route: 065
  8. ZOMETA [Suspect]
     Indication: MULTIPLE MYELOMA
     Dosage: 4 MG, QMO
     Route: 042
     Dates: start: 20021122, end: 20040812

REACTIONS (10)
  - BONE DISORDER [None]
  - CANDIDIASIS [None]
  - DISEASE RECURRENCE [None]
  - ORAL SURGERY [None]
  - OSTEONECROSIS [None]
  - POLYNEUROPATHY [None]
  - STAPHYLOCOCCAL INFECTION [None]
  - STOMATITIS [None]
  - TOOTH DISORDER [None]
  - TOOTH EXTRACTION [None]
